FAERS Safety Report 7415244-4 (Version None)
Quarter: 2011Q2

REPORT INFORMATION
  Report Type: 
  Country: None (occurrence: None)
  Receive Date: 20110406
  Receipt Date: 20110324
  Transmission Date: 20111010
  Serious: Yes (Other)
  Sender: FDA-Public Use
  Company Number: MIN-00721

PATIENT
  Age: 15 Year
  Sex: Female

DRUGS (1)
  1. MINOCYCLINE [Suspect]
     Indication: ACNE

REACTIONS (9)
  - DIPLOPIA [None]
  - PAPILLARY MUSCLE HAEMORRHAGE [None]
  - PAPILLOEDEMA [None]
  - NECK PAIN [None]
  - MUSCLE SPASMS [None]
  - NAUSEA [None]
  - HEADACHE [None]
  - VISUAL FIELD DEFECT [None]
  - BENIGN INTRACRANIAL HYPERTENSION [None]
